FAERS Safety Report 7313755-3 (Version None)
Quarter: 2011Q1

REPORT INFORMATION
  Report Type: 
  Country: None (occurrence: None)
  Receive Date: 20110218
  Receipt Date: 20110218
  Transmission Date: 20110831
  Serious: Yes (Hospitalization)
  Sender: FDA-Public Use
  Company Number: None

PATIENT
  Age: 46 Year
  Sex: Female
  Weight: 90.7194 kg

DRUGS (1)
  1. COMBIPATCH [Suspect]
     Indication: HOT FLUSH
     Dosage: 1 PATCH TWICE A WEEK TOP
     Route: 061
     Dates: start: 20110208, end: 20110211

REACTIONS (7)
  - NAUSEA [None]
  - HYPERTENSION [None]
  - ABDOMINAL PAIN [None]
  - HYPERVENTILATION [None]
  - DIZZINESS [None]
  - DIARRHOEA [None]
  - HEART RATE INCREASED [None]
